FAERS Safety Report 21509895 (Version 2)
Quarter: 2022Q4

REPORT INFORMATION
  Report Type: Spontaneous
  Country: UY (occurrence: UY)
  Receive Date: 20221026
  Receipt Date: 20221115
  Transmission Date: 20230113
  Serious: No
  Sender: FDA-Public Use
  Company Number: UY-PFIZER INC-PV202200073554

PATIENT
  Age: 14 Year
  Sex: Female

DRUGS (1)
  1. GENOTROPIN [Suspect]
     Active Substance: SOMATROPIN
     Indication: Growth hormone deficiency
     Dosage: 1 TO 1.4 MG 7 TIMES PER WEEK
     Dates: start: 20220202

REACTIONS (2)
  - Device malfunction [Unknown]
  - Device mechanical issue [Unknown]
